APPROVED DRUG PRODUCT: VOLTAREN-XR
Active Ingredient: DICLOFENAC SODIUM
Strength: 100MG **Federal Register determination that product was not discontinued or withdrawn for safety or effectiveness reasons**
Dosage Form/Route: TABLET, EXTENDED RELEASE;ORAL
Application: N020254 | Product #001
Applicant: NOVARTIS PHARMACEUTICALS CORP
Approved: Mar 8, 1996 | RLD: Yes | RS: No | Type: DISCN